FAERS Safety Report 9969453 (Version 2)
Quarter: 2014Q1

REPORT INFORMATION
  Report Type: Spontaneous
  Country: US (occurrence: US)
  Receive Date: 20140306
  Receipt Date: 20140314
  Transmission Date: 20141002
  Serious: Yes (Hospitalization, Other)
  Sender: FDA-Public Use
  Company Number: US-AMGEN-USASP2014015563

PATIENT
  Age: 62 Year
  Sex: Male

DRUGS (1)
  1. ENBREL [Suspect]
     Indication: RHEUMATOID ARTHRITIS
     Dosage: 50 MG, QWK
     Route: 065
     Dates: start: 20120101

REACTIONS (12)
  - Scrotal cyst [Recovered/Resolved]
  - Vertigo [Recovered/Resolved]
  - Hypertension [Unknown]
  - Dizziness [Recovered/Resolved]
  - Scrotal abscess [Recovered/Resolved]
  - Vitiligo [Not Recovered/Not Resolved]
  - Rash pruritic [Not Recovered/Not Resolved]
  - Rash erythematous [Not Recovered/Not Resolved]
  - Skin discolouration [Not Recovered/Not Resolved]
  - Adverse drug reaction [Recovered/Resolved]
  - Headache [Unknown]
  - Vision blurred [Not Recovered/Not Resolved]
